FAERS Safety Report 5065223-X (Version None)
Quarter: 2006Q3

REPORT INFORMATION
  Report Type: 
  Country: None (occurrence: None)
  Receive Date: 20060705
  Receipt Date: 20051121
  Transmission Date: 20061208
  Serious: Yes (Hospitalization, Disabling)
  Sender: FDA-Public Use
  Company Number: US-2005-025199

PATIENT
  Sex: Female

DRUGS (47)
  1. CLIMARA [Suspect]
     Dosage: CONT, TRANSDERMAL
     Route: 062
  2. TRIVORA-21 [Suspect]
  3. NORINYL(NORETHISTERONE, MESTRANOL) [Suspect]
  4. COMBIPATCH [Suspect]
  5. FEMHRT [Suspect]
  6. OGEN [Suspect]
  7. ESTINYL [Suspect]
  8. ORTHO-NOVUM [Suspect]
  9. DESOGEN ^ORGANON^(DESOGESTREL, ETHINYLESTRADIOL) [Suspect]
  10. OVCON(ETHINYLESTRADIOL, NORETHISTERONE) [Suspect]
  11. VAGIFEM [Suspect]
  12. PROVERA [Suspect]
  13. ESTROSTEP [Suspect]
  14. DIENESTROL [Suspect]
  15. ESCLIM [Suspect]
  16. MENEST /OLD FORM/(ESTROGENS CONJUGATED) [Suspect]
  17. PREMARIN [Suspect]
  18. NECON(NORETHISTERONE, ETHINYLESTRADIOL) [Suspect]
  19. OGESTREL 0.5/50-21 [Suspect]
  20. ORTHO CYCLEN-21 [Suspect]
  21. ACTIVELLA [Suspect]
  22. MICROGESTIN FE 1.5/30(FERROUS FUMARATE, ETHINYLESTRADIOL, NORETHISTERO [Suspect]
  23. ESTRACE [Suspect]
  24. MICRONOR [Suspect]
  25. ALESSE [Suspect]
  26. MODICON [Suspect]
  27. ORTHO-EST [Suspect]
  28. PREMPRO [Suspect]
  29. PREMPHASE (PREMARIN;CYCRIN 14/14) [Suspect]
  30. BREVICON 21 [Suspect]
  31. PREFEST [Suspect]
  32. NORDETTE-21 [Suspect]
  33. DEPO-PROVERA SUSPENSION/INJ [Suspect]
  34. CYCLESSA [Suspect]
  35. MIRENA [Suspect]
  36. ALORA [Suspect]
  37. ORTHO-CEPT [Suspect]
  38. LEVORA 0.15/30-21 [Suspect]
  39. NOR-QD [Suspect]
  40. LO/OVRAL [Suspect]
  41. PROMETRIUM [Suspect]
  42. ZOVIA 1/35E-21 [Suspect]
  43. CENESTIN [Suspect]
  44. CRINONE [Suspect]
  45. YASMIN [Suspect]
  46. VIVELLE [Suspect]
  47. MIRCETTE [Suspect]

REACTIONS (1)
  - BREAST CANCER [None]
